FAERS Safety Report 7560286-1 (Version None)
Quarter: 2011Q2

REPORT INFORMATION
  Report Type: 
  Country: None (occurrence: None)
  Receive Date: 20110621
  Receipt Date: 20110617
  Transmission Date: 20111010
  Serious: Yes (Life-Threatening, Hospitalization)
  Sender: FDA-Public Use
  Company Number: DE-JNJFOC-20110605006

PATIENT
  Sex: Female
  Weight: 80 kg

DRUGS (5)
  1. HEPARIN [Concomitant]
     Indication: ACUTE MYOCARDIAL INFARCTION
     Route: 065
     Dates: start: 20081106, end: 20081106
  2. CLOPIDOGREL [Concomitant]
     Indication: ACUTE MYOCARDIAL INFARCTION
     Route: 065
     Dates: start: 20081106
  3. ABCIXIMAB [Suspect]
     Indication: ACUTE MYOCARDIAL INFARCTION
     Route: 022
     Dates: start: 20081106, end: 20081106
  4. ABCIXIMAB [Suspect]
     Route: 042
     Dates: start: 20081106, end: 20081106
  5. ACETYL SALICYLIC ACID COMPOUND TAB [Concomitant]
     Indication: ACUTE MYOCARDIAL INFARCTION
     Route: 065
     Dates: start: 20081106

REACTIONS (1)
  - CARDIAC TAMPONADE [None]
